FAERS Safety Report 4853792-1 (Version None)
Quarter: 2005Q4

REPORT INFORMATION
  Report Type: 
  Country: None (occurrence: None)
  Receive Date: 20051212
  Receipt Date: 20051129
  Transmission Date: 20060501
  Serious: Yes (Other)
  Sender: FDA-Public Use
  Company Number: 2005163004

PATIENT
  Sex: Male
  Weight: 74.8435 kg

DRUGS (4)
  1. LIPITOR [Suspect]
     Indication: MYOCARDIAL INFARCTION
     Dosage: 10 MG (10 MG, 1 IN 1 D), ORAL
     Route: 048
  2. ASPIRIN [Concomitant]
  3. IRON (IRON) [Concomitant]
  4. ADALAT [Concomitant]

REACTIONS (10)
  - ANAEMIA [None]
  - ARTHRITIS [None]
  - CONDITION AGGRAVATED [None]
  - DIET REFUSAL [None]
  - DISEASE RECURRENCE [None]
  - HEART RATE DECREASED [None]
  - MICTURITION DISORDER [None]
  - MYALGIA [None]
  - PROSTATE EXAMINATION ABNORMAL [None]
  - URINARY INCONTINENCE [None]
